FAERS Safety Report 18364586 (Version 1)
Quarter: 2020Q4

REPORT INFORMATION
  Report Type: Spontaneous
  Country: US (occurrence: US)
  Receive Date: 20201008
  Receipt Date: 20201008
  Transmission Date: 20210114
  Serious: Yes (Disabling)
  Sender: FDA-Public Use
  Company Number: None

PATIENT
  Sex: Male

DRUGS (2)
  1. CYTARABINE. [Suspect]
     Active Substance: CYTARABINE
  2. PEGASPARGASE [Suspect]
     Active Substance: PEGASPARGASE

REACTIONS (17)
  - Aspartate aminotransferase increased [None]
  - Hypoalbuminaemia [None]
  - Hyperglycaemia [None]
  - Hypocalcaemia [None]
  - Abdominal compartment syndrome [None]
  - Alanine aminotransferase increased [None]
  - Pancytopenia [None]
  - Hypotension [None]
  - Pancreatitis necrotising [None]
  - Hypertriglyceridaemia [None]
  - Toxicity to various agents [None]
  - Acute respiratory distress syndrome [None]
  - Pancreatitis acute [None]
  - Lipase increased [None]
  - Septic shock [None]
  - Liver function test increased [None]
  - Acute kidney injury [None]

NARRATIVE: CASE EVENT DATE: 20190205
